FAERS Safety Report 7940835-1 (Version None)
Quarter: 2011Q4

REPORT INFORMATION
  Report Type: 
  Country: None (occurrence: None)
  Receive Date: 20111122
  Receipt Date: 20111107
  Transmission Date: 20120403
  Serious: Yes (Hospitalization, Other)
  Sender: FDA-Public Use
  Company Number: INT_00036_2011

PATIENT
  Sex: Male

DRUGS (5)
  1. CEFAZOLIN [Concomitant]
  2. DIALYSATE [Concomitant]
  3. COUMADIN [Suspect]
     Indication: AORTIC VALVE REPLACEMENT
     Dosage: DF
     Dates: start: 20101201
  4. COUMADIN [Suspect]
     Indication: AORTIC VALVE REPLACEMENT
     Dosage: DF
     Dates: start: 20110701
  5. CEFTAZIDIME [Suspect]
     Indication: INFECTIOUS PERITONITIS
     Dosage: DF, INTRAPERITONEAL
     Route: 033
     Dates: start: 20101201

REACTIONS (3)
  - RECTAL NEOPLASM [None]
  - ACTIVATED PARTIAL THROMBOPLASTIN TIME PROLONGED [None]
  - DRUG INTERACTION [None]
